FAERS Safety Report 8016632-8 (Version None)
Quarter: 2011Q4

REPORT INFORMATION
  Report Type: 
  Country: None (occurrence: None)
  Receive Date: 20111231
  Receipt Date: 20111213
  Transmission Date: 20120403
  Serious: Yes (Other)
  Sender: FDA-Public Use
  Company Number: PHHY2011IE111428

PATIENT
  Age: 48 Year
  Sex: Male

DRUGS (3)
  1. BENZYL PIPERAZINE [Suspect]
  2. CLOZAPINE [Suspect]
     Indication: SCHIZOPHRENIA
     Dosage: 300 MG, BID
  3. OLANZAPINE [Concomitant]

REACTIONS (16)
  - PERSECUTORY DELUSION [None]
  - SPEECH DISORDER [None]
  - ANTIPSYCHOTIC DRUG LEVEL BELOW THERAPEUTIC [None]
  - INCOHERENT [None]
  - BRAIN OEDEMA [None]
  - ABNORMAL BEHAVIOUR [None]
  - BRAIN MASS [None]
  - MYOCLONUS [None]
  - HALLUCINATION, AUDITORY [None]
  - DELIRIUM [None]
  - SINUS TACHYCARDIA [None]
  - AGITATION [None]
  - DYSARTHRIA [None]
  - CONFUSIONAL STATE [None]
  - DISTURBANCE IN ATTENTION [None]
  - IRRITABILITY [None]
